FAERS Safety Report 9169050 (Version 2)
Quarter: 2013Q1

REPORT INFORMATION
  Report Type: Spontaneous
  Country: US (occurrence: None)
  Receive Date: 20130308
  Receipt Date: 20130320
  Transmission Date: 20140127
  Serious: Yes (Hospitalization)
  Sender: FDA-Public Use
  Company Number: 2013-0364

PATIENT
  Age: 73 Year
  Sex: Male

DRUGS (1)
  1. KYPROLIS [Suspect]
     Indication: PRODUCT USED FOR UNKNOWN INDICATION
     Dates: start: 20120905, end: 20120920

REACTIONS (2)
  - Convulsion [None]
  - Confusional state [None]
